FAERS Safety Report 20890095 (Version 3)
Quarter: 2022Q4

REPORT INFORMATION
  Report Type: Spontaneous
  Country: US (occurrence: US)
  Receive Date: 20220530
  Receipt Date: 20221003
  Transmission Date: 20230112
  Serious: Yes (Hospitalization)
  Sender: FDA-Public Use
  Company Number: US-BRISTOL-MYERS SQUIBB COMPANY-2022-049293

PATIENT
  Age: 84 Year
  Sex: Male

DRUGS (1)
  1. REVLIMID [Suspect]
     Active Substance: LENALIDOMIDE
     Indication: Plasma cell myeloma
     Dosage: TAKE 1 CAPSULE BY MOUTH ONCE A DAY FOR 21 DAYS OF A 28 DAYS CYCLE
     Route: 048
     Dates: start: 20211231

REACTIONS (4)
  - Diarrhoea [Unknown]
  - Urinary tract infection [Unknown]
  - Infection [Unknown]
  - COVID-19 [Unknown]
